FAERS Safety Report 11970430 (Version 1)
Quarter: 2016Q1

REPORT INFORMATION
  Report Type: Spontaneous
  Country: US (occurrence: None)
  Receive Date: 20160126
  Receipt Date: 20160126
  Transmission Date: 20160526
  Serious: No
  Sender: FDA-Public Use
  Company Number: None

PATIENT
  Age: 43 Year
  Sex: Female
  Weight: 64 kg

DRUGS (1)
  1. INTRON A [Suspect]
     Active Substance: INTERFERON ALFA-2B
     Dates: end: 20140704

REACTIONS (5)
  - Blood calcium decreased [None]
  - Thirst [None]
  - Cognitive disorder [None]
  - Blood phosphorus decreased [None]
  - Dry mouth [None]

NARRATIVE: CASE EVENT DATE: 20140707
